FAERS Safety Report 15455050 (Version 2)
Quarter: 2018Q4

REPORT INFORMATION
  Report Type: Spontaneous
  Country: RO (occurrence: RO)
  Receive Date: 20181002
  Receipt Date: 20181008
  Transmission Date: 20190204
  Serious: Yes (Other)
  Sender: FDA-Public Use
  Company Number: RO-BAYER-2018-183425

PATIENT

DRUGS (1)
  1. ULTRAVIST [Suspect]
     Active Substance: IOPROMIDE
     Indication: ANGIOCARDIOGRAM
     Dosage: UNK UNK, ONCE
     Route: 042
     Dates: start: 2015, end: 2015

REACTIONS (2)
  - Nephropathy [Recovered/Resolved]
  - Glomerular filtration rate decreased [Recovered/Resolved]
